FAERS Safety Report 5929475-3 (Version None)
Quarter: 2008Q4

REPORT INFORMATION
  Report Type: 
  Country: None (occurrence: None)
  Receive Date: 20081024
  Receipt Date: 20081014
  Transmission Date: 20090506
  Serious: No
  Sender: FDA-Public Use
  Company Number: JP-JNJFOC-20080600138

PATIENT
  Sex: Female
  Weight: 63 kg

DRUGS (41)
  1. REMICADE [Suspect]
     Route: 042
  2. REMICADE [Suspect]
     Route: 042
  3. REMICADE [Suspect]
     Route: 042
  4. REMICADE [Suspect]
     Route: 042
  5. REMICADE [Suspect]
     Route: 042
  6. REMICADE [Suspect]
     Route: 042
  7. REMICADE [Suspect]
     Route: 042
  8. REMICADE [Suspect]
     Route: 042
  9. REMICADE [Suspect]
     Route: 042
  10. REMICADE [Suspect]
     Route: 042
  11. REMICADE [Suspect]
     Route: 042
  12. REMICADE [Suspect]
     Route: 042
  13. REMICADE [Suspect]
     Route: 042
  14. REMICADE [Suspect]
     Route: 042
  15. REMICADE [Suspect]
     Route: 042
  16. REMICADE [Suspect]
     Indication: RHEUMATOID ARTHRITIS
     Route: 042
  17. PREDONINE [Suspect]
     Indication: DRUG USE FOR UNKNOWN INDICATION
     Route: 048
  18. METHOTREXATE [Suspect]
     Route: 048
  19. METHOTREXATE [Suspect]
     Indication: RHEUMATOID ARTHRITIS
     Route: 048
  20. ANTIHISTAMINES [Concomitant]
  21. ANTIHISTAMINES [Concomitant]
  22. ANTIHISTAMINES [Concomitant]
  23. ANTIHISTAMINES [Concomitant]
  24. ANTIHISTAMINES [Concomitant]
  25. ANTIHISTAMINES [Concomitant]
  26. ANTIHISTAMINES [Concomitant]
  27. ANTIHISTAMINES [Concomitant]
  28. ANTIHISTAMINES [Concomitant]
  29. ANTIHISTAMINES [Concomitant]
  30. ANTIHISTAMINES [Concomitant]
  31. ANTIHISTAMINES [Concomitant]
  32. ANTIHISTAMINES [Concomitant]
  33. ANTIHISTAMINES [Concomitant]
     Indication: PROPHYLAXIS
  34. FLUCAM [Concomitant]
     Indication: RHEUMATOID ARTHRITIS
     Route: 048
  35. BLOPRESS [Concomitant]
     Route: 048
  36. BONALON [Concomitant]
     Route: 048
  37. ALFAROL [Concomitant]
     Route: 048
  38. TAGAMET [Concomitant]
     Route: 048
  39. MARZULENE-S [Concomitant]
     Route: 048
  40. MAGNESIUM OXIDE [Concomitant]
     Route: 048
  41. FOLIAMIN [Concomitant]
     Indication: PLATELET COUNT DECREASED
     Route: 048

REACTIONS (1)
  - INFLAMMATION [None]
